FAERS Safety Report 16697455 (Version 2)
Quarter: 2019Q4

REPORT INFORMATION
  Report Type: Spontaneous
  Country: US (occurrence: US)
  Receive Date: 20190813
  Receipt Date: 20191224
  Transmission Date: 20200122
  Serious: Yes (Life-Threatening, Hospitalization, Other)
  Sender: FDA-Public Use
  Company Number: US-ASTRAZENECA-2019SF14790

PATIENT
  Sex: Male
  Weight: 93 kg

DRUGS (5)
  1. INSULIN [Concomitant]
     Active Substance: INSULIN NOS
     Indication: DIABETES MELLITUS
  2. PRILOSEC [Suspect]
     Active Substance: OMEPRAZOLE MAGNESIUM
     Indication: DYSPEPSIA
     Route: 048
  3. SEROQUEL [Suspect]
     Active Substance: QUETIAPINE FUMARATE
     Indication: SUICIDE ATTEMPT
     Route: 048
  4. MULTI VITAMIN [Concomitant]
     Active Substance: VITAMINS
  5. NEXIUM [Suspect]
     Active Substance: ESOMEPRAZOLE MAGNESIUM
     Indication: DYSPEPSIA
     Route: 048

REACTIONS (8)
  - Gastric haemorrhage [Unknown]
  - Diabetes mellitus [Unknown]
  - Product use in unapproved indication [Unknown]
  - Suicide attempt [Unknown]
  - Depression [Unknown]
  - Off label use [Unknown]
  - Hepatic cirrhosis [Unknown]
  - Irritability [Unknown]
